FAERS Safety Report 16266559 (Version 1)
Quarter: 2019Q2

REPORT INFORMATION
  Report Type: Spontaneous
  Country: DE (occurrence: DE)
  Receive Date: 20190502
  Receipt Date: 20190502
  Transmission Date: 20190711
  Serious: Yes (Other)
  Sender: FDA-Public Use
  Company Number: DE-JNJFOC-20190444419

PATIENT
  Age: 80 Year
  Sex: Female

DRUGS (2)
  1. XARELTO [Suspect]
     Active Substance: RIVAROXABAN
     Indication: THROMBOSIS PROPHYLAXIS
     Route: 048
  2. XARELTO [Suspect]
     Active Substance: RIVAROXABAN
     Indication: THROMBOSIS PROPHYLAXIS
     Dosage: STARTER PACKAGE 15 MG
     Route: 048
     Dates: start: 20190402

REACTIONS (5)
  - Skin haemorrhage [Unknown]
  - Haematochezia [Unknown]
  - Retinal detachment [Unknown]
  - Eye pain [Unknown]
  - Gingival bleeding [Unknown]
